FAERS Safety Report 24001180 (Version 1)
Quarter: 2024Q2

REPORT INFORMATION
  Report Type: Spontaneous
  Country: CN (occurrence: CN)
  Receive Date: 20240621
  Receipt Date: 20240621
  Transmission Date: 20240716
  Serious: Yes (Other)
  Sender: FDA-Public Use
  Company Number: CN-SANDOZ-SDZ2024CN057436

PATIENT
  Age: 60 Year
  Sex: Female
  Weight: 60 kg

DRUGS (2)
  1. VORICONAZOLE [Suspect]
     Active Substance: VORICONAZOLE
     Dosage: 200 MG, BID
     Route: 048
     Dates: start: 20240520, end: 20240601
  2. VORICONAZOLE [Suspect]
     Active Substance: VORICONAZOLE
     Indication: Bronchopulmonary aspergillosis
     Dosage: 400 MG, BID
     Route: 048
     Dates: start: 20240519, end: 20240519

REACTIONS (8)
  - Blindness transient [Recovering/Resolving]
  - Liver injury [Recovering/Resolving]
  - Tongue coated [Recovering/Resolving]
  - Dyschromatopsia [Recovered/Resolved]
  - Dysgeusia [Unknown]
  - Hyperhidrosis [Recovering/Resolving]
  - Abdominal pain upper [Unknown]
  - Presyncope [Unknown]

NARRATIVE: CASE EVENT DATE: 20240529
